FAERS Safety Report 8792360 (Version 3)
Quarter: 2015Q2

REPORT INFORMATION
  Report Type: Report from Study
  Country: US (occurrence: US)
  Receive Date: 20120918
  Receipt Date: 20150409
  Transmission Date: 20150821
  Serious: Yes (Death)
  Sender: FDA-Public Use
  Company Number: US-ROCHE-CID000000002102680

PATIENT
  Age: 23 Year
  Sex: Male

DRUGS (10)
  1. CAPECITABINE. [Suspect]
     Active Substance: CAPECITABINE
     Indication: PRODUCT USED FOR UNKNOWN INDICATION
     Route: 065
  2. OXALIPLATIN. [Concomitant]
     Active Substance: OXALIPLATIN
  3. CLARITIN [Concomitant]
     Active Substance: LORATADINE
  4. LEUCOVORIN [Concomitant]
     Active Substance: LEUCOVORIN
  5. EXCEDRIN (UNITED STATES) [Concomitant]
  6. AVASTIN [Suspect]
     Active Substance: BEVACIZUMAB
     Indication: SMALL INTESTINE CARCINOMA
     Route: 065
     Dates: start: 20070807
  7. 5-FU [Concomitant]
     Active Substance: FLUOROURACIL
  8. LORTAB (UNITED STATES) [Concomitant]
     Route: 065
  9. PHENERGAN [Concomitant]
     Active Substance: PROMETHAZINE HYDROCHLORIDE
     Route: 065
  10. IRINOTECAN [Concomitant]
     Active Substance: IRINOTECAN

REACTIONS (14)
  - Death [Fatal]
  - Decreased appetite [Unknown]
  - Bone pain [Unknown]
  - Pneumonitis [Unknown]
  - Back pain [Unknown]
  - Dyspnoea [Unknown]
  - Cough [Unknown]
  - Alopecia [Unknown]
  - Weight decreased [Unknown]
  - Headache [Unknown]
  - Chest pain [Unknown]
  - Off label use [Unknown]
  - Dry skin [Unknown]
  - Skin discolouration [Unknown]

NARRATIVE: CASE EVENT DATE: 20080610
